FAERS Safety Report 5699664-4 (Version None)
Quarter: 2008Q2

REPORT INFORMATION
  Report Type: 
  Country: None (occurrence: None)
  Receive Date: 20080410
  Receipt Date: 20080401
  Transmission Date: 20081010
  Serious: Yes (Other)
  Sender: FDA-Public Use
  Company Number: PHHY2008GB01300

PATIENT
  Age: 67 Year
  Sex: Male

DRUGS (1)
  1. DESFERAL [Suspect]
     Indication: HYPERTRIGLYCERIDAEMIA
     Dosage: 75 MG/DAY
     Route: 048
     Dates: start: 20040101, end: 20040419

REACTIONS (1)
  - RETINAL HAEMORRHAGE [None]
